FAERS Safety Report 16576954 (Version 1)
Quarter: 2019Q3

REPORT INFORMATION
  Report Type: Spontaneous
  Country: US (occurrence: US)
  Receive Date: 20190716
  Receipt Date: 20190716
  Transmission Date: 20191004
  Serious: No
  Sender: FDA-Public Use
  Company Number: US-GLENMARK PHARMACEUTICALS-2019GMK041272

PATIENT

DRUGS (1)
  1. MOMETASONE FUROATE CREAM USP, 0.1% [Suspect]
     Active Substance: MOMETASONE FUROATE
     Indication: ALOPECIA
     Dosage: UNK, BID
     Route: 061
     Dates: start: 20190429

REACTIONS (4)
  - No adverse event [Unknown]
  - Intentional dose omission [Unknown]
  - Product administered at inappropriate site [Unknown]
  - Product use in unapproved indication [Unknown]

NARRATIVE: CASE EVENT DATE: 2019
